FAERS Safety Report 6524744-0 (Version None)
Quarter: 2009Q4

REPORT INFORMATION
  Report Type: 
  Country: None (occurrence: None)
  Receive Date: 20091222
  Receipt Date: 20091208
  Transmission Date: 20100525
  Serious: Yes (Other)
  Sender: FDA-Public Use
  Company Number: PAR_03027_2009

PATIENT
  Age: 44 Year
  Sex: Male

DRUGS (2)
  1. IBUPROFEN [Suspect]
     Indication: SINUSITIS
     Dosage: 6 G.IN 4 DAYS ORAL
     Route: 048
     Dates: start: 20090305, end: 20090306
  2. MOXIFLOXACIN HYDROCHLORIDE [Suspect]
     Indication: SINUSITIS
     Dosage: 400 MG ORAL
     Route: 048
     Dates: start: 20090305, end: 20090309

REACTIONS (6)
  - ASTHENIA [None]
  - DRUG INTERACTION [None]
  - DYSGEUSIA [None]
  - HEPATITIS CHOLESTATIC [None]
  - PLATELET COUNT DECREASED [None]
  - WHITE BLOOD CELL COUNT DECREASED [None]
